FAERS Safety Report 11644511 (Version 1)
Quarter: 2015Q4

REPORT INFORMATION
  Report Type: Spontaneous
  Country: CA (occurrence: None)
  Receive Date: 20151019
  Receipt Date: 20151019
  Transmission Date: 20160304
  Serious: Yes (Disabling)
  Sender: FDA-Public Use
  Company Number: None

PATIENT
  Age: 3 Year
  Sex: Female
  Weight: 13.61 kg

DRUGS (1)
  1. PEG 3350 [Suspect]
     Active Substance: POLYETHYLENE GLYCOL 3350
     Indication: CONSTIPATION
     Dates: start: 20151014, end: 20151018

REACTIONS (7)
  - Mood swings [None]
  - Crying [None]
  - Anger [None]
  - Pain in extremity [None]
  - Anxiety [None]
  - Sleep disorder [None]
  - Electrolyte imbalance [None]

NARRATIVE: CASE EVENT DATE: 20151014
